FAERS Safety Report 4398107-0 (Version None)
Quarter: 2004Q3

REPORT INFORMATION
  Report Type: 
  Country: None (occurrence: None)
  Receive Date: 20040713
  Receipt Date: 20040701
  Transmission Date: 20050211
  Serious: Yes (Life-Threatening)
  Sender: FDA-Public Use
  Company Number: 2004PK01112

PATIENT
  Age: 66 Year
  Sex: Male
  Weight: 105 kg

DRUGS (8)
  1. PROPOFOL [Suspect]
     Indication: ANAESTHESIA
     Dosage: 130 MG DAILY
     Dates: start: 20040322, end: 20040322
  2. HAES-STERIL [Suspect]
     Indication: ANAESTHESIA
     Dosage: 500 ML DAILY IV
     Route: 042
     Dates: start: 20040322, end: 20040322
  3. NIMBEX [Suspect]
     Indication: ANAESTHESIA
     Dosage: 10 MG ONCE
     Dates: start: 20040322, end: 20040322
  4. SORTIS [Concomitant]
  5. VERAMEX [Concomitant]
  6. ACENORM HCT [Concomitant]
  7. ACTRAPID HUMAN [Concomitant]
  8. PROTAPHAN [Concomitant]

REACTIONS (3)
  - ANAPHYLACTIC SHOCK [None]
  - LACTIC ACIDOSIS [None]
  - RHABDOMYOLYSIS [None]
